FAERS Safety Report 8162281-0 (Version None)
Quarter: 2012Q1

REPORT INFORMATION
  Report Type: 
  Country: None (occurrence: None)
  Receive Date: 20120221
  Receipt Date: 20120203
  Transmission Date: 20120608
  Serious: Yes (Other)
  Sender: FDA-Public Use
  Company Number: JPI-P-019479

PATIENT
  Age: 34 Year
  Sex: Female

DRUGS (3)
  1. XYREM [Suspect]
     Indication: NARCOLEPSY
     Dosage: 3 GM (1.5 GM,2 IN 1 D),ORAL,  ORAL, 8 GM (4 GM,2 IN 1 D),ORAL
     Route: 048
     Dates: start: 20110501
  2. XYREM [Suspect]
     Indication: NARCOLEPSY
     Dosage: 3 GM (1.5 GM,2 IN 1 D),ORAL,  ORAL, 8 GM (4 GM,2 IN 1 D),ORAL
     Route: 048
     Dates: start: 20091020
  3. XYREM [Suspect]
     Indication: NARCOLEPSY
     Dosage: 3 GM (1.5 GM,2 IN 1 D),ORAL,  ORAL, 8 GM (4 GM,2 IN 1 D),ORAL
     Route: 048
     Dates: start: 20111108

REACTIONS (2)
  - EWING'S SARCOMA [None]
  - HYSTERECTOMY [None]
